APPROVED DRUG PRODUCT: HICON
Active Ingredient: SODIUM IODIDE I-131
Strength: 1-1000mCi/ML
Dosage Form/Route: SOLUTION;ORAL
Application: N021305 | Product #005
Applicant: JUBILANT DRAXIMAGE INC DBA JUBILANT RADIOPHARMA
Approved: Apr 4, 2006 | RLD: No | RS: No | Type: DISCN